FAERS Safety Report 5660991-8 (Version None)
Quarter: 2008Q1

REPORT INFORMATION
  Report Type: 
  Country: None (occurrence: None)
  Receive Date: 20080311
  Receipt Date: 20080225
  Transmission Date: 20080703
  Serious: Yes (Other)
  Sender: FDA-Public Use
  Company Number: US-PFIZER INC-2008017329

PATIENT
  Sex: Male
  Weight: 72 kg

DRUGS (4)
  1. CEREBYX [Suspect]
     Indication: GRAND MAL CONVULSION
     Route: 042
     Dates: start: 20080223, end: 20080224
  2. CEREBYX [Suspect]
     Indication: CONVULSION
  3. ARICEPT [Concomitant]
  4. NAMENDA [Concomitant]

REACTIONS (5)
  - ASPARTATE AMINOTRANSFERASE INCREASED [None]
  - BLOOD CREATINE PHOSPHOKINASE INCREASED [None]
  - DYSKINESIA [None]
  - PRURITUS GENERALISED [None]
  - WHITE BLOOD CELL COUNT INCREASED [None]
